FAERS Safety Report 14233207 (Version 1)
Quarter: 2017Q4

REPORT INFORMATION
  Report Type: Report from Study
  Country: TR (occurrence: TR)
  Receive Date: 20171128
  Receipt Date: 20171128
  Transmission Date: 20180321
  Serious: Yes (Death, Hospitalization)
  Sender: FDA-Public Use
  Company Number: TR-ACTELION-A-NJ2017-163229

PATIENT
  Age: 45 Year
  Sex: Female

DRUGS (2)
  1. VENTAVIS [Suspect]
     Active Substance: ILOPROST
     Indication: PULMONARY ARTERIAL HYPERTENSION
     Dosage: UNK
     Route: 055
  2. ANTIBIOTICS [Suspect]
     Active Substance: UNSPECIFIED INGREDIENT
     Indication: NEPHRITIS
     Dosage: UNK
     Route: 042
     Dates: start: 20171106, end: 20171113

REACTIONS (2)
  - Renal failure [Fatal]
  - Pyrexia [Unknown]

NARRATIVE: CASE EVENT DATE: 20171106
